FAERS Safety Report 18457925 (Version 2)
Quarter: 2021Q1

REPORT INFORMATION
  Report Type: Spontaneous
  Country: DE (occurrence: DE)
  Receive Date: 20201103
  Receipt Date: 20210127
  Transmission Date: 20210419
  Serious: Yes (Life-Threatening, Hospitalization, Other)
  Sender: FDA-Public Use
  Company Number: DE-PFIZER INC-2020423112

PATIENT
  Age: 82 Year
  Sex: Female

DRUGS (9)
  1. L?THYROX [Concomitant]
     Active Substance: LEVOTHYROXINE SODIUM
     Dosage: 75 UG, 1X/DAY
  2. AMLODIPINE [Concomitant]
     Active Substance: AMLODIPINE BESYLATE
     Dosage: 5 MG, 1X/DAY
  3. MOVICOL [Concomitant]
     Active Substance: POLYETHYLENE GLYCOL 3350\POTASSIUM CHLORIDE\SODIUM BICARBONATE\SODIUM CHLORIDE
     Indication: PROPHYLAXIS
     Dosage: UNK, 3X/DAY
  4. FASLODEX [Concomitant]
     Active Substance: FULVESTRANT
     Indication: BREAST CANCER METASTATIC
     Dosage: UNK
     Dates: start: 202009
  5. ASPIRIN. [Concomitant]
     Active Substance: ASPIRIN
     Dosage: 100 MG, 1X/DAY
  6. JANUMET [Concomitant]
     Active Substance: METFORMIN HYDROCHLORIDE\SITAGLIPTIN PHOSPHATE
     Dosage: 2.5 DF, DAILY (1?0?1/2?1)
  7. IBRANCE [Suspect]
     Active Substance: PALBOCICLIB
     Indication: BREAST CANCER METASTATIC
     Dosage: 125 MG, CYCLIC (ONCE DAILY, DAY 1?21)
     Route: 048
     Dates: start: 202009, end: 2020
  8. METOHEXAL [METOPROLOL SUCCINATE] [Concomitant]
     Active Substance: METOPROLOL SUCCINATE
     Dosage: 142.5 MG, DAILY (1?0?1/2?0)
  9. RAMIPRIL. [Concomitant]
     Active Substance: RAMIPRIL
     Dosage: 10 MG, 1X/DAY

REACTIONS (15)
  - Haemoglobin decreased [Recovering/Resolving]
  - Blood iron decreased [Unknown]
  - Neoplasm progression [Unknown]
  - Transferrin saturation decreased [Unknown]
  - Subileus [Unknown]
  - Decreased appetite [Unknown]
  - Red blood cell count decreased [Recovering/Resolving]
  - Haptoglobin increased [Unknown]
  - Colitis ulcerative [Recovering/Resolving]
  - Vomiting [Unknown]
  - White blood cell count decreased [Unknown]
  - Gastritis [Unknown]
  - Mean cell volume increased [Not Recovered/Not Resolved]
  - Blood calcium decreased [Unknown]
  - Diverticulum intestinal [Unknown]

NARRATIVE: CASE EVENT DATE: 2020
